FAERS Safety Report 15963837 (Version 2)
Quarter: 2019Q1

REPORT INFORMATION
  Report Type: Spontaneous
  Country: DE (occurrence: DE)
  Receive Date: 20190214
  Receipt Date: 20190308
  Transmission Date: 20190417
  Serious: Yes (Hospitalization)
  Sender: FDA-Public Use
  Company Number: DE-MYLANLABS-2019M1012824

PATIENT
  Age: 73 Year
  Sex: Male

DRUGS (16)
  1. METAMIZOL                          /06276701/ [Concomitant]
     Active Substance: METAMIZOLE
     Dosage: SEIT L?NGEREM B.A.W.
     Route: 048
  2. AMLODIPINE [Concomitant]
     Active Substance: AMLODIPINE BESYLATE
     Dosage: SEIT L?NGEREM B.A.W.
     Route: 048
  3. HCT [Suspect]
     Active Substance: HYDROCHLOROTHIAZIDE
     Indication: PRODUCT USED FOR UNKNOWN INDICATION
     Dosage: 12.5 MILLIGRAM, QD (SEIT L?NGEREM)
     Route: 048
     Dates: end: 20170824
  4. AMIODARON                          /00133101/ [Concomitant]
     Active Substance: AMIODARONE
     Dosage: SEIT L?NGEREM B.A.W.
     Route: 048
  5. MIRTAZAPINE. [Suspect]
     Active Substance: MIRTAZAPINE
     Dosage: 45 MILLIGRAM, QD
     Route: 048
     Dates: start: 20170817, end: 20170824
  6. VENLAFAXINE [Suspect]
     Active Substance: VENLAFAXINE HYDROCHLORIDE
     Dosage: DOSE INCREASED 150 MILLIGRAM, QD
     Route: 048
     Dates: start: 20170821, end: 20170824
  7. BISOPROLOL [Concomitant]
     Active Substance: BISOPROLOL
     Dosage: SEIT L?NGEREM B.A.W.
     Route: 048
  8. PANTOPRAZOLE [Suspect]
     Active Substance: PANTOPRAZOLE
     Indication: PRODUCT USED FOR UNKNOWN INDICATION
     Dosage: 40 MILLIGRAM, QD (SEIT L?NGEREM B.A.W.)
     Route: 048
  9. MIRTAZAPINE. [Suspect]
     Active Substance: MIRTAZAPINE
     Indication: PRODUCT USED FOR UNKNOWN INDICATION
     Dosage: 7,5-30 MG
     Route: 048
     Dates: start: 20170810, end: 20170816
  10. RISPERIDONE. [Suspect]
     Active Substance: RISPERIDONE
     Indication: PRODUCT USED FOR UNKNOWN INDICATION
     Dosage: 1 MILLIGRAM, QD
     Route: 048
     Dates: start: 20170822, end: 20170824
  11. CAPTOPRIL. [Suspect]
     Active Substance: CAPTOPRIL
     Indication: PRODUCT USED FOR UNKNOWN INDICATION
     Dosage: 25 MILLIGRAM, QD (SEIT L?NGEREM)
     Route: 048
     Dates: end: 20170824
  12. OXYCODONE [Concomitant]
     Active Substance: OXYCODONE
     Dosage: SEIT L?NGEREM B.A.W.
     Route: 048
  13. SIMVASTATIN. [Concomitant]
     Active Substance: SIMVASTATIN
     Dosage: SEIT L?NGEREM B.A.W.
     Route: 048
  14. EUTHYROX [Concomitant]
     Active Substance: LEVOTHYROXINE SODIUM
     Dosage: SEIT L?NGEREM B.A.W.
     Route: 048
  15. TAMSULOSIN [Concomitant]
     Active Substance: TAMSULOSIN
     Dosage: SEIT L?NGEREM B.A.W.
     Route: 048
  16. VENLAFAXINE [Suspect]
     Active Substance: VENLAFAXINE HYDROCHLORIDE
     Indication: PRODUCT USED FOR UNKNOWN INDICATION
     Dosage: 47,5-112,5 MG
     Route: 048
     Dates: start: 20170814, end: 20170820

REACTIONS (1)
  - Hyponatraemia [Recovered/Resolved]

NARRATIVE: CASE EVENT DATE: 20170817
